FAERS Safety Report 4687498-9 (Version None)
Quarter: 2005Q2

REPORT INFORMATION
  Report Type: 
  Country: None (occurrence: None)
  Receive Date: 20050610
  Receipt Date: 20050531
  Transmission Date: 20051028
  Serious: Yes (Other)
  Sender: FDA-Public Use
  Company Number: GR-JNJFOC-20050600286

PATIENT
  Age: 61 Year
  Sex: Female

DRUGS (2)
  1. INFLIXIMAB [Suspect]
     Indication: RHEUMATOID ARTHRITIS
     Dosage: 0,2,6 AND EVERY SIX WEEKS THEREAFTER
     Route: 042
  2. PREDNISONE TAB [Concomitant]

REACTIONS (1)
  - TUBERCULOSIS [None]
